FAERS Safety Report 11552171 (Version 2)
Quarter: 2015Q4

REPORT INFORMATION
  Report Type: Spontaneous
  Country: US (occurrence: US)
  Receive Date: 20150925
  Receipt Date: 20151104
  Transmission Date: 20160304
  Serious: Yes (Hospitalization, Other)
  Sender: FDA-Public Use
  Company Number: US-TEVA-594876USA

PATIENT
  Age: 71 Year
  Sex: Female

DRUGS (9)
  1. PANTOPRAZOLE [Concomitant]
     Active Substance: PANTOPRAZOLE SODIUM
     Dates: start: 1995
  2. CALCIUM WITH VITAMIN D [Concomitant]
     Active Substance: CALCIUM\VITAMIN D
     Dates: start: 2006
  3. AMLODIPINE [Suspect]
     Active Substance: AMLODIPINE BESYLATE
     Indication: BLOOD PRESSURE MEASUREMENT
     Dosage: 10 MILLIGRAM DAILY;
     Route: 065
     Dates: start: 1995
  4. FUROSEMIDE. [Concomitant]
     Active Substance: FUROSEMIDE
     Dates: start: 2007
  5. AROMASIN [Suspect]
     Active Substance: EXEMESTANE
     Indication: BREAST CANCER
     Dosage: 25 MILLIGRAM DAILY;
     Route: 065
     Dates: start: 20131224
  6. COUMADINE [Suspect]
     Active Substance: WARFARIN SODIUM
     Indication: TRANSIENT ISCHAEMIC ATTACK
     Dosage: 5 MILLIGRAM DAILY;
     Route: 065
     Dates: start: 2003
  7. COUMADINE [Suspect]
     Active Substance: WARFARIN SODIUM
     Route: 065
     Dates: start: 2003
  8. NOVOLOG [Suspect]
     Active Substance: INSULIN ASPART
     Indication: DIABETES MELLITUS
     Dosage: 70/30, 60 UNITS AM, 35 UNITS PM
     Dates: start: 2006
  9. POTASSIUM [Concomitant]
     Active Substance: POTASSIUM
     Dates: start: 2002

REACTIONS (5)
  - Transient ischaemic attack [Recovered/Resolved]
  - Cardiac disorder [Recovered/Resolved]
  - Coagulopathy [Recovered/Resolved]
  - Cerebrovascular accident [Recovered/Resolved]
  - Speech disorder [Recovered/Resolved]

NARRATIVE: CASE EVENT DATE: 20150731
